FAERS Safety Report 20617421 (Version 1)
Quarter: 2022Q1

REPORT INFORMATION
  Report Type: Spontaneous
  Country: DE (occurrence: DE)
  Receive Date: 20220321
  Receipt Date: 20220321
  Transmission Date: 20220423
  Serious: Yes (Hospitalization)
  Sender: FDA-Public Use
  Company Number: DE-CELGENE-DEU-20220200381

PATIENT
  Age: 71 Year
  Sex: Male

DRUGS (3)
  1. AZACITIDINE [Suspect]
     Active Substance: AZACITIDINE
     Indication: Acute myeloid leukaemia
     Dosage: UNK
     Route: 058
     Dates: start: 20210623
  2. NIVOLUMAB [Suspect]
     Active Substance: NIVOLUMAB
     Indication: Acute myeloid leukaemia
     Dosage: UNK
     Route: 065
     Dates: start: 20210623
  3. RELATLIMAB [Suspect]
     Active Substance: RELATLIMAB
     Indication: Acute myeloid leukaemia
     Dosage: 1 UNK, QD
     Route: 065
     Dates: start: 20210623

REACTIONS (1)
  - Enterococcal infection [Not Recovered/Not Resolved]

NARRATIVE: CASE EVENT DATE: 20210803
